FAERS Safety Report 23350142 (Version 1)
Quarter: 2023Q4

REPORT INFORMATION
  Report Type: Other
  Country: US (occurrence: None)
  Receive Date: 20231229
  Receipt Date: 20231229
  Transmission Date: 20240109
  Serious: Yes (Other)
  Sender: FDA-Public Use
  Company Number: US-ROCHE-3481278

PATIENT
  Age: 75 Year
  Sex: Female

DRUGS (9)
  1. ALECENSA [Suspect]
     Active Substance: ALECTINIB HYDROCHLORIDE
     Indication: Metastases to lung
     Dosage: TAKE 4 CAPSULE BY MOUTH 2 X DAILY
     Route: 065
     Dates: start: 202203
  2. AVASTIN [Suspect]
     Active Substance: BEVACIZUMAB
     Indication: Product used for unknown indication
     Route: 042
  3. TECENTRIQ [Suspect]
     Active Substance: ATEZOLIZUMAB
     Indication: Product used for unknown indication
     Route: 041
  4. ZESTRIL [Concomitant]
     Active Substance: LISINOPRIL
  5. NORVASC [Concomitant]
     Active Substance: AMLODIPINE BESYLATE
  6. PRILOSEC [Concomitant]
     Active Substance: OMEPRAZOLE MAGNESIUM
  7. ZOCOR [Concomitant]
     Active Substance: SIMVASTATIN
  8. CARBOPLATIN [Concomitant]
     Active Substance: CARBOPLATIN
  9. PACLITAXEL [Concomitant]
     Active Substance: PACLITAXEL

REACTIONS (2)
  - Diverticulitis [Not Recovered/Not Resolved]
  - Drug intolerance [Recovered/Resolved]
